FAERS Safety Report 9801917 (Version 1)
Quarter: 2014Q1

REPORT INFORMATION
  Report Type: Spontaneous
  Country: US (occurrence: US)
  Receive Date: 20140107
  Receipt Date: 20140107
  Transmission Date: 20141002
  Serious: No
  Sender: FDA-Public Use
  Company Number: US-ALLERGAN-1306770US

PATIENT
  Age: 55 Year
  Sex: Female

DRUGS (2)
  1. ACZONE [Suspect]
     Indication: ACNE
     Dosage: THIN LAYER TO THE FACE AT NIGHT
     Route: 061
     Dates: start: 20130127
  2. DOXYCYCLINE [Concomitant]
     Indication: ACNE
     Dosage: 100 MG, TWICE A DAY
     Dates: start: 20130127

REACTIONS (1)
  - Drug ineffective [Unknown]
